FAERS Safety Report 5019893-2 (Version None)
Quarter: 2006Q2

REPORT INFORMATION
  Report Type: 
  Country: None (occurrence: None)
  Receive Date: 20060605
  Receipt Date: 20060605
  Transmission Date: 20061013
  Serious: Yes (Other)
  Sender: FDA-Public Use
  Company Number: None

PATIENT
  Age: 31 Year
  Sex: Female
  Weight: 55.3388 kg

DRUGS (2)
  1. PAXIL [Suspect]
     Indication: GENERALISED ANXIETY DISORDER
     Dosage: 20MG  DAILY PO
     Route: 048
     Dates: start: 20040731, end: 20060602
  2. PAXIL [Suspect]
     Indication: POSTPARTUM DEPRESSION
     Dosage: 20MG  DAILY PO
     Route: 048
     Dates: start: 20040731, end: 20060602

REACTIONS (4)
  - DRUG DEPENDENCE [None]
  - DRUG WITHDRAWAL SYNDROME [None]
  - IRRITABILITY [None]
  - SUICIDAL IDEATION [None]
